FAERS Safety Report 21868311 (Version 1)
Quarter: 2023Q1

REPORT INFORMATION
  Report Type: Spontaneous
  Country: US (occurrence: US)
  Receive Date: 20230116
  Receipt Date: 20230116
  Transmission Date: 20230417
  Serious: Yes (Hospitalization, Other)
  Sender: FDA-Public Use
  Company Number: US-SA-SAC20230113000121

PATIENT
  Age: 67 Year
  Sex: Male

DRUGS (13)
  1. TOUJEO [Suspect]
     Active Substance: INSULIN GLARGINE
     Indication: Diabetes mellitus
     Dosage: 30 U, QD
     Route: 065
  2. MIFEPRISTONE [Concomitant]
     Active Substance: MIFEPRISTONE
     Indication: Cushing^s syndrome
     Dosage: 300MG;QD
     Route: 048
     Dates: start: 20221005, end: 20221018
  3. MIFEPRISTONE [Concomitant]
     Active Substance: MIFEPRISTONE
     Dosage: 600MG;QD
     Route: 048
     Dates: start: 20221019, end: 2022
  4. MIFEPRISTONE [Concomitant]
     Active Substance: MIFEPRISTONE
     Dosage: 600 MG, QW
     Route: 048
     Dates: start: 2022, end: 2022
  5. MIFEPRISTONE [Concomitant]
     Active Substance: MIFEPRISTONE
     Dosage: 900 MG, QD
     Route: 048
     Dates: start: 2022
  6. MIFEPRISTONE [Concomitant]
     Active Substance: MIFEPRISTONE
     Dosage: 600 MG, QD
     Route: 048
  7. ALLOPURINOL [Concomitant]
     Active Substance: ALLOPURINOL
  8. JARDIANCE [Concomitant]
     Active Substance: EMPAGLIFLOZIN
  9. METOPROLOL [Concomitant]
     Active Substance: METOPROLOL
  10. NOVOLOG [Concomitant]
     Active Substance: INSULIN ASPART
  11. OLMESARTAN [Concomitant]
     Active Substance: OLMESARTAN
  12. PREGABALIN [Concomitant]
     Active Substance: PREGABALIN
  13. TRULICITY [Concomitant]
     Active Substance: DULAGLUTIDE

REACTIONS (15)
  - Abdominal pain upper [Unknown]
  - Sepsis [Unknown]
  - Diarrhoea [Recovering/Resolving]
  - Decubitus ulcer [Unknown]
  - Delusion [Unknown]
  - Suspected COVID-19 [Unknown]
  - Sleep deficit [Unknown]
  - Constipation [Recovering/Resolving]
  - Decreased appetite [Recovering/Resolving]
  - Nausea [Unknown]
  - Lethargy [Unknown]
  - Glycosylated haemoglobin increased [Unknown]
  - Blood glucose increased [Unknown]
  - Blood glucose decreased [Unknown]
  - Intentional product misuse [Unknown]

NARRATIVE: CASE EVENT DATE: 20220101
